FAERS Safety Report 6160941-4 (Version None)
Quarter: 2009Q2

REPORT INFORMATION
  Report Type: 
  Country: None (occurrence: None)
  Receive Date: 20090417
  Receipt Date: 20090417
  Transmission Date: 20091009
  Serious: Yes (Other)
  Sender: FDA-Public Use
  Company Number: None

PATIENT
  Age: 69 Year
  Sex: Male
  Weight: 95.2554 kg

DRUGS (1)
  1. AMBIEN CR [Suspect]
     Indication: SLEEP DISORDER
     Dosage: 1 TAB, 1 AT MCG HR
     Dates: start: 20070105, end: 20070409

REACTIONS (3)
  - DRUG DOSE OMISSION [None]
  - NIGHTMARE [None]
  - SLEEP DISORDER [None]
